FAERS Safety Report 22349277 (Version 1)
Quarter: 2023Q2

REPORT INFORMATION
  Report Type: Spontaneous
  Country: US (occurrence: None)
  Receive Date: 20230519
  Receipt Date: 20230519
  Transmission Date: 20230722
  Serious: Yes (Hospitalization)
  Sender: FDA-Public Use
  Company Number: None

PATIENT
  Sex: Female

DRUGS (4)
  1. ENVARSUS XR [Suspect]
     Active Substance: TACROLIMUS
     Indication: Renal transplant
     Dosage: 1 MG ORAL
     Route: 048
     Dates: start: 20221201
  2. ENVARSUS XR [Suspect]
     Active Substance: TACROLIMUS
     Dosage: 0.75 ORAL
     Route: 048
  3. MYCOPHENOLIC ACID [Concomitant]
     Active Substance: MYCOPHENOLIC ACID
  4. SIROLIMUS [Concomitant]
     Active Substance: SIROLIMUS

REACTIONS (1)
  - Infection [None]
